FAERS Safety Report 18822277 (Version 1)
Quarter: 2021Q1

REPORT INFORMATION
  Report Type: Spontaneous
  Country: CN (occurrence: CN)
  Receive Date: 20210202
  Receipt Date: 20210202
  Transmission Date: 20210419
  Serious: Yes (Hospitalization)
  Sender: FDA-Public Use
  Company Number: CN-BAYER-2021-049476

PATIENT
  Age: 29 Year
  Sex: Male
  Weight: 66 kg

DRUGS (1)
  1. AVELOX [Suspect]
     Active Substance: MOXIFLOXACIN HYDROCHLORIDE
     Indication: MYCOPLASMA INFECTION
     Dosage: 0.4 G, QD
     Route: 048
     Dates: start: 20200904, end: 20200904

REACTIONS (9)
  - Rash erythematous [Recovering/Resolving]
  - Sinus tachycardia [Recovering/Resolving]
  - Headache [Recovering/Resolving]
  - Blood pressure decreased [Recovering/Resolving]
  - Vision blurred [Recovering/Resolving]
  - Chills [None]
  - Dizziness [Recovering/Resolving]
  - Conjunctival hyperaemia [Recovering/Resolving]
  - Pyrexia [Recovered/Resolved]

NARRATIVE: CASE EVENT DATE: 20200904
